FAERS Safety Report 5514195-X (Version None)
Quarter: 2007Q4

REPORT INFORMATION
  Report Type: 
  Country: None (occurrence: None)
  Receive Date: 20071113
  Receipt Date: 20071101
  Transmission Date: 20080405
  Serious: Yes (Hospitalization)
  Sender: FDA-Public Use
  Company Number: FR-JNJFOC-20070305956

PATIENT
  Age: 54 Year
  Sex: Female

DRUGS (1)
  1. TAVANIC [Suspect]
     Indication: BRONCHITIS
     Route: 048
     Dates: start: 20070209, end: 20070211

REACTIONS (6)
  - ABDOMINAL PAIN [None]
  - ANURIA [None]
  - GENITAL LESION [None]
  - HAEMATOCHEZIA [None]
  - MYALGIA [None]
  - STOMATITIS [None]
